APPROVED DRUG PRODUCT: ZIDOVUDINE
Active Ingredient: ZIDOVUDINE
Strength: 60MG
Dosage Form/Route: TABLET;ORAL
Application: N022294 | Product #001
Applicant: AUROBINDO PHARMA LTD
Approved: Jul 23, 2009 | RLD: No | RS: No | Type: DISCN